FAERS Safety Report 12173377 (Version 1)
Quarter: 2016Q1

REPORT INFORMATION
  Report Type: Spontaneous
  Country: US (occurrence: US)
  Receive Date: 20160311
  Receipt Date: 20160311
  Transmission Date: 20160526
  Serious: No
  Sender: FDA-Public Use
  Company Number: US-BIOGEN-2013BI068555

PATIENT
  Sex: Male

DRUGS (15)
  1. TECFIDERA [Suspect]
     Active Substance: DIMETHYL FUMARATE
     Route: 048
     Dates: start: 20130711
  2. DOXAZOSIN MESYLATE. [Concomitant]
     Active Substance: DOXAZOSIN MESYLATE
  3. CLONAZEPAM. [Concomitant]
     Active Substance: CLONAZEPAM
  4. TERAZOSIN [Concomitant]
     Active Substance: TERAZOSIN\TERAZOSIN HYDROCHLORIDE
  5. TECFIDERA [Suspect]
     Active Substance: DIMETHYL FUMARATE
     Indication: MULTIPLE SCLEROSIS
     Route: 048
     Dates: start: 20130615
  6. AMITIZA [Concomitant]
     Active Substance: LUBIPROSTONE
  7. LEVOTHYROXINE. [Concomitant]
     Active Substance: LEVOTHYROXINE
  8. TIZANIDINE. [Concomitant]
     Active Substance: TIZANIDINE
  9. BACLOFEN. [Concomitant]
     Active Substance: BACLOFEN
  10. CIALIS [Concomitant]
     Active Substance: TADALAFIL
  11. DIAZEPAM. [Concomitant]
     Active Substance: DIAZEPAM
  12. IBUPROFEN. [Concomitant]
     Active Substance: IBUPROFEN
  13. LIPITOR [Concomitant]
     Active Substance: ATORVASTATIN CALCIUM
  14. ASPIRIN. [Concomitant]
     Active Substance: ASPIRIN
  15. LISINOPRIL. [Concomitant]
     Active Substance: LISINOPRIL

REACTIONS (2)
  - Headache [Unknown]
  - Flushing [Unknown]
